FAERS Safety Report 4539985-1 (Version None)
Quarter: 2004Q4

REPORT INFORMATION
  Report Type: 
  Country: None (occurrence: None)
  Receive Date: 20041223
  Receipt Date: 20041210
  Transmission Date: 20050328
  Serious: Yes (Death, Other)
  Sender: FDA-Public Use
  Company Number: 2004073145

PATIENT
  Age: 81 Year
  Sex: Male

DRUGS (11)
  1. DILANTIN [Suspect]
     Indication: CONVULSION
     Dosage: 300 MG (300 MG 1 IN 1 D) ORAL
     Route: 048
     Dates: start: 20040531
  2. DILANTIN [Suspect]
     Indication: CONVULSION
     Dosage: 300 MG (300 MG 1 IN 1 D) ORAL
     Route: 048
     Dates: start: 20040601
  3. DILANTIN [Suspect]
     Indication: CONVULSION
     Dosage: 300 MG (300 MG 1 IN 1 D) ORAL
     Route: 048
     Dates: start: 20040801
  4. DONEPEZIL HCL [Concomitant]
  5. DILTIAZEM HYDROCHLORIDE [Concomitant]
  6. BENZATROPINE MESILATE [Concomitant]
  7. EPOGEN [Concomitant]
  8. TERAZOSIN [Concomitant]
  9. QUETIAPINE FUMARATE [Concomitant]
  10. SERTRALINE HYDROCHLORIDE [Concomitant]
  11. HALOPERIDOL [Concomitant]

REACTIONS (3)
  - ANTICONVULSANT DRUG LEVEL BELOW THERAPEUTIC [None]
  - BLOOD ALBUMIN DECREASED [None]
  - CONVULSION [None]
